FAERS Safety Report 5855871-9 (Version None)
Quarter: 2008Q3

REPORT INFORMATION
  Report Type: 
  Country: None (occurrence: None)
  Receive Date: 20080825
  Receipt Date: 20080630
  Transmission Date: 20090109
  Serious: No
  Sender: FDA-Public Use
  Company Number: A0735385A

PATIENT
  Age: 65 Year
  Sex: Female

DRUGS (8)
  1. MALARONE [Suspect]
     Indication: BABESIOSIS
     Dosage: 1TAB PER DAY
     Route: 048
     Dates: start: 20080201
  2. CEFTIN [Concomitant]
  3. ZITHROMAX [Concomitant]
  4. CRESTOR [Concomitant]
  5. SYNTHROID [Concomitant]
  6. ACYCLOVIR [Concomitant]
  7. NEURONTIN [Concomitant]
  8. ALPRAZOLAM [Concomitant]

REACTIONS (4)
  - FATIGUE [None]
  - FEELING ABNORMAL [None]
  - FEELING JITTERY [None]
  - NERVOUSNESS [None]
